FAERS Safety Report 18439989 (Version 1)
Quarter: 2020Q4

REPORT INFORMATION
  Report Type: Spontaneous
  Country: IL (occurrence: IL)
  Receive Date: 20201029
  Receipt Date: 20201029
  Transmission Date: 20210114
  Serious: Yes (Hospitalization)
  Sender: FDA-Public Use
  Company Number: IL-MACLEODS PHARMACEUTICALS US LTD-MAC2020028726

PATIENT

DRUGS (1)
  1. OSELTAMIVIR 75MG [Suspect]
     Active Substance: OSELTAMIVIR
     Indication: PROPHYLAXIS
     Dosage: 75 MILLIGRAM, BID
     Route: 065

REACTIONS (1)
  - Sinus bradycardia [Recovered/Resolved]
